FAERS Safety Report 22238616 (Version 1)
Quarter: 2023Q2

REPORT INFORMATION
  Report Type: Other
  Country: IE (occurrence: IE)
  Receive Date: 20230421
  Receipt Date: 20230421
  Transmission Date: 20230721
  Serious: Yes (Hospitalization)
  Sender: FDA-Public Use
  Company Number: None

PATIENT
  Age: 76 Year
  Sex: Male

DRUGS (1)
  1. MEROPENEM [Suspect]
     Active Substance: MEROPENEM
     Indication: Osteomyelitis
     Dosage: 2 GRAM, TID (2 GRAM, THRICE DAILY  )
     Route: 042
     Dates: start: 20230301

REACTIONS (2)
  - Wheezing [None]
  - Dyspnoea [None]

NARRATIVE: CASE EVENT DATE: 20230328
